FAERS Safety Report 11758818 (Version 2)
Quarter: 2015Q4

REPORT INFORMATION
  Report Type: Spontaneous
  Country: US (occurrence: US)
  Receive Date: 20151120
  Receipt Date: 20151214
  Transmission Date: 20160304
  Serious: Yes (Other)
  Sender: FDA-Public Use
  Company Number: US-PFIZER INC-2015388662

PATIENT
  Age: 79 Year
  Sex: Male
  Weight: 97.52 kg

DRUGS (19)
  1. COQ 10 [Concomitant]
     Active Substance: UBIDECARENONE
     Dosage: 100 MG, 2X/DAY
     Route: 048
  2. NORVASC [Concomitant]
     Active Substance: AMLODIPINE BESYLATE
     Dosage: 10 MG, 1X/DAY
     Route: 048
     Dates: start: 20091210
  3. ZAROXOLYN [Concomitant]
     Active Substance: METOLAZONE
     Dosage: 2.6 MG, 1X/DAY
     Route: 048
     Dates: start: 20150309
  4. PRILOSEC [Concomitant]
     Active Substance: OMEPRAZOLE MAGNESIUM
     Dosage: 40 MG, 1X/DAY (EVERY MORNING BEFORE BREAKFAST)
     Route: 048
     Dates: start: 20150309
  5. ZITHROMAX [Concomitant]
     Active Substance: AZITHROMYCIN DIHYDRATE
     Dosage: 500 MG ON DAY 1
     Dates: start: 20151102
  6. REVATIO [Suspect]
     Active Substance: SILDENAFIL CITRATE
     Indication: PULMONARY ARTERIAL HYPERTENSION
     Dosage: 20 MG, 3X/DAY
     Route: 048
     Dates: start: 2012
  7. COUMADIN [Concomitant]
     Active Substance: WARFARIN SODIUM
     Indication: ANTICOAGULANT THERAPY
     Dosage: 5 MG, MONDAYS AND FRIDAYS OR AS DIRECTED
     Route: 048
     Dates: start: 20150722
  8. ZYLOPRIM [Concomitant]
     Active Substance: ALLOPURINOL
     Dosage: 100 MG, 1X/DAY
     Route: 048
     Dates: start: 20091210
  9. FISH OIL [Concomitant]
     Active Substance: FISH OIL
     Dosage: 1000 MG, 2X/DAY
     Route: 048
     Dates: start: 20090727
  10. KLOR-CON M [Concomitant]
     Active Substance: POTASSIUM CHLORIDE
     Dosage: 40 MEQ, 2X/DAY
     Route: 048
     Dates: start: 20150216
  11. LASIX [Concomitant]
     Active Substance: FUROSEMIDE
     Dosage: 80 MG, 1X/DAY
     Route: 048
  12. ZAROXOLYN [Concomitant]
     Active Substance: METOLAZONE
     Dosage: 5.2 MG, 1X/DAY
     Route: 048
     Dates: start: 20150309
  13. K-DUR [Concomitant]
     Active Substance: POTASSIUM CHLORIDE
     Dosage: 40 MEQ, 2X/DAY
     Route: 048
     Dates: start: 20150216
  14. TENORMIN [Concomitant]
     Active Substance: ATENOLOL
     Dosage: 100 MG, 1X/DAY
     Route: 048
     Dates: start: 20120717
  15. MICARDIS [Concomitant]
     Active Substance: TELMISARTAN
     Dosage: 40 MG, 1X/DAY
     Route: 048
     Dates: start: 20091210
  16. ASPIRIN. [Concomitant]
     Active Substance: ASPIRIN
     Dosage: 81 MG, 1X/DAY
     Route: 048
     Dates: start: 20090727
  17. ZITHROMAX [Concomitant]
     Active Substance: AZITHROMYCIN DIHYDRATE
     Dosage: 250 MG ON DAYS 2-5
     Dates: start: 20151103
  18. COUMADIN [Concomitant]
     Active Substance: WARFARIN SODIUM
     Dosage: 7.5 MG ON SUNDAY, TUESDAY, WEDNESDAY, THURSDAY AND SATURDAY OR AS DIRECTED
     Dates: start: 20150722
  19. SYNTHROID [Concomitant]
     Active Substance: LEVOTHYROXINE SODIUM
     Dosage: 20 ?G, 1X/DAY
     Route: 048
     Dates: start: 20140701

REACTIONS (13)
  - Right ventricular failure [Unknown]
  - Ascites [Not Recovered/Not Resolved]
  - Hypoxia [Not Recovered/Not Resolved]
  - Faeces discoloured [Recovered/Resolved]
  - Nasal mucosal disorder [Unknown]
  - Dyspnoea [Unknown]
  - Pulmonary hypertension [Unknown]
  - Anaemia [Unknown]
  - Sleep apnoea syndrome [Unknown]
  - Renal failure [Unknown]
  - Epistaxis [Unknown]
  - Haemorrhoids [Unknown]
  - Disease progression [Unknown]

NARRATIVE: CASE EVENT DATE: 2012
